FAERS Safety Report 19835907 (Version 1)
Quarter: 2021Q3

REPORT INFORMATION
  Report Type: Other
  Country: FR (occurrence: FR)
  Receive Date: 20210915
  Receipt Date: 20210915
  Transmission Date: 20211014
  Serious: Yes (Hospitalization, Other)
  Sender: FDA-Public Use
  Company Number: FR-ASTELLAS-2021US034068

PATIENT
  Age: 73 Year
  Sex: Male

DRUGS (17)
  1. PROGRAF [Suspect]
     Active Substance: TACROLIMUS
     Indication: HEART TRANSPLANT
     Dosage: 2.5 MG, DAILY
     Route: 048
     Dates: start: 20210224
  2. COMIRNATY [Suspect]
     Active Substance: TOZINAMERAN
     Indication: COVID-19 IMMUNISATION
     Route: 030
     Dates: start: 20210719, end: 20210719
  3. SOLUPRED (PREDNISOLONE METASULFOBENZOATE SODIUM) [Suspect]
     Active Substance: PREDNISOLONE SODIUM METAZOATE
     Indication: HEART TRANSPLANT
     Route: 048
  4. SEROPLEX [Concomitant]
     Active Substance: ESCITALOPRAM OXALATE
     Indication: AFFECTIVE DISORDER
     Route: 048
  5. KARDEGIC [Concomitant]
     Active Substance: ASPIRIN DL-LYSINE
     Indication: MYOCARDIAL ISCHAEMIA
     Route: 048
  6. PERMIXON [Concomitant]
     Active Substance: HERBALS\SAW PALMETTO
     Indication: BENIGN PROSTATIC HYPERPLASIA
     Route: 048
  7. CELLCEPT [Suspect]
     Active Substance: MYCOPHENOLATE MOFETIL\MYCOPHENOLATE MOFETIL HYDROCHLORIDE
     Indication: COVID-19 IMMUNISATION
     Route: 048
     Dates: start: 20210730
  8. ALLOPURINOL. [Concomitant]
     Active Substance: ALLOPURINOL
     Indication: HYPERURICAEMIA
     Route: 048
  9. LASILIX [Concomitant]
     Active Substance: FUROSEMIDE
     Indication: CHRONIC KIDNEY DISEASE
     Route: 048
  10. MAGNE B6 [Concomitant]
     Active Substance: MAGNESIUM\PYRIDOXINE
     Indication: MINERAL SUPPLEMENTATION
     Route: 048
  11. LEVOTHYROXINE SODIQUE [Concomitant]
     Active Substance: LEVOTHYROXINE SODIUM
     Indication: HYPOTHYROIDISM
     Route: 048
  12. EUPANTOL [Concomitant]
     Active Substance: PANTOPRAZOLE SODIUM
     Indication: PRODUCT USED FOR UNKNOWN INDICATION
     Route: 048
  13. JOSIR LP [Concomitant]
     Active Substance: TAMSULOSIN
     Indication: BENIGN PROSTATIC HYPERPLASIA
     Dosage: 0.4 MG, ONCE DAILY
     Route: 048
  14. JANUVIA [Concomitant]
     Active Substance: SITAGLIPTIN PHOSPHATE
     Indication: HYPERGLYCAEMIA
     Route: 048
  15. STAGID [Concomitant]
     Active Substance: METFORMIN PAMOATE
     Indication: HYPERGLYCAEMIA
     Route: 048
  16. LESCOL [Concomitant]
     Active Substance: FLUVASTATIN SODIUM
     Indication: THROMBOSIS PROPHYLAXIS
     Route: 048
  17. ANDROTARDYL [Concomitant]
     Active Substance: TESTOSTERONE
     Indication: HYPOGONADISM
     Dosage: 250 MG, EVERY 3 WEEKS (250 MG/1 ML)
     Route: 030

REACTIONS (1)
  - COVID-19 pneumonia [Recovered/Resolved]

NARRATIVE: CASE EVENT DATE: 20210720
